FAERS Safety Report 21481036 (Version 1)
Quarter: 2022Q4

REPORT INFORMATION
  Report Type: Report from Study
  Country: PL (occurrence: PL)
  Receive Date: 20221019
  Receipt Date: 20221019
  Transmission Date: 20230113
  Serious: Yes (Other)
  Sender: FDA-Public Use
  Company Number: PL-TAKEDA-2022TUS063666

PATIENT
  Age: 68 Year
  Sex: Male
  Weight: 70 kg

DRUGS (1)
  1. BRENTUXIMAB VEDOTIN [Suspect]
     Active Substance: BRENTUXIMAB VEDOTIN
     Indication: Cutaneous T-cell lymphoma
     Dosage: UNK
     Route: 042
     Dates: start: 20220420, end: 20220830

REACTIONS (10)
  - Polyneuropathy [Not Recovered/Not Resolved]
  - Pyrexia [Recovering/Resolving]
  - Anaemia macrocytic [Recovering/Resolving]
  - Thrombocytopenia [Recovering/Resolving]
  - Blood albumin decreased [Recovering/Resolving]
  - Protein total decreased [Recovering/Resolving]
  - Malaise [Recovering/Resolving]
  - Asthenia [Recovering/Resolving]
  - C-reactive protein increased [Recovering/Resolving]
  - Hypotonia [Recovering/Resolving]

NARRATIVE: CASE EVENT DATE: 20220823
